FAERS Safety Report 5363877-1 (Version None)
Quarter: 2007Q2

REPORT INFORMATION
  Report Type: 
  Country: None (occurrence: None)
  Receive Date: 20070620
  Receipt Date: 20070611
  Transmission Date: 20071010
  Serious: Yes (Hospitalization)
  Sender: FDA-Public Use
  Company Number: FR-ASTRAZENECA-2007CG00888

PATIENT
  Age: 16 Year
  Sex: Female
  Weight: 79 kg

DRUGS (4)
  1. SYMBICORT [Suspect]
     Indication: ASTHMA
     Dosage: ONE INHALATION FOUR TIMES A DAY
     Route: 055
  2. NEXIUM [Suspect]
     Route: 048
     Dates: start: 20061029, end: 20061103
  3. ARIXTRA [Suspect]
     Route: 058
     Dates: start: 20061028, end: 20061102
  4. TRIAFEMI [Concomitant]

REACTIONS (3)
  - HEADACHE [None]
  - LUNG DISORDER [None]
  - VOMITING [None]
